FAERS Safety Report 20889274 (Version 1)
Quarter: 2022Q2

REPORT INFORMATION
  Report Type: Spontaneous
  Country: US (occurrence: US)
  Receive Date: 20220530
  Receipt Date: 20220530
  Transmission Date: 20220721
  Serious: No
  Sender: FDA-Public Use
  Company Number: US-JNJFOC-20220529326

PATIENT
  Age: 1 Decade
  Sex: Male

DRUGS (1)
  1. CHILDRENS ZYRTEC [Suspect]
     Active Substance: CETIRIZINE HYDROCHLORIDE
     Indication: Seasonal allergy
     Dosage: 1 DOSE DAILY WHEN WE COULD GET HIM TO TAKE IT
     Route: 048
     Dates: start: 20201215

REACTIONS (1)
  - Retching [Unknown]
